FAERS Safety Report 5105766-3 (Version None)
Quarter: 2006Q3

REPORT INFORMATION
  Report Type: 
  Country: None (occurrence: None)
  Receive Date: 20060915
  Receipt Date: 20060905
  Transmission Date: 20061208
  Serious: Yes (Hospitalization)
  Sender: FDA-Public Use
  Company Number: US-BRISTOL-MYERS SQUIBB COMPANY-13498167

PATIENT
  Age: 66 Year
  Sex: Female
  Weight: 73 kg

DRUGS (11)
  1. ABILIFY [Suspect]
     Indication: BIPOLAR DISORDER
     Dates: start: 20020101, end: 20060701
  2. PLAVIX [Suspect]
     Indication: CEREBROVASCULAR ACCIDENT
     Dates: start: 20010101
  3. ATENOLOL [Concomitant]
  4. RYTHMOL [Concomitant]
     Dates: start: 19990101
  5. PREVACID [Concomitant]
     Dates: start: 20040101
  6. VYTORIN [Concomitant]
  7. ASCORBIC ACID [Concomitant]
     Dates: start: 20040101
  8. CALTRATE + D [Concomitant]
     Dates: start: 20010101
  9. VITAMIN E [Concomitant]
     Dates: start: 20010101
  10. KLONOPIN [Concomitant]
     Dates: start: 20060720
  11. MULTI-VITAMIN [Concomitant]
     Dates: start: 20010101

REACTIONS (4)
  - ARRHYTHMIA [None]
  - GASTROINTESTINAL HAEMORRHAGE [None]
  - HYPOTENSION [None]
  - WEIGHT INCREASED [None]
